FAERS Safety Report 14155188 (Version 5)
Quarter: 2017Q4

REPORT INFORMATION
  Report Type: Report from Study
  Country: DE (occurrence: DE)
  Receive Date: 20171103
  Receipt Date: 20171221
  Transmission Date: 20180321
  Serious: Yes (Hospitalization)
  Sender: FDA-Public Use
  Company Number: DE-EISAI MEDICAL RESEARCH-EC-2017-032693

PATIENT
  Age: 53 Year
  Sex: Female
  Weight: 59.5 kg

DRUGS (5)
  1. NEUROSTADA [Concomitant]
  2. BALDRIN [Concomitant]
  3. GRANISETRON [Concomitant]
     Active Substance: GRANISETRON
  4. LORAZEPAM. [Concomitant]
     Active Substance: LORAZEPAM
  5. ERIBULIN [Suspect]
     Active Substance: ERIBULIN
     Indication: BREAST CANCER
     Route: 041
     Dates: start: 20170621, end: 20171116

REACTIONS (2)
  - Pericardial effusion [Recovered/Resolved]
  - Pleural effusion [Recovered/Resolved]

NARRATIVE: CASE EVENT DATE: 20171030
